FAERS Safety Report 7707226-X (Version None)
Quarter: 2011Q3

REPORT INFORMATION
  Report Type: 
  Country: None (occurrence: None)
  Receive Date: 20110824
  Receipt Date: 20110812
  Transmission Date: 20111222
  Serious: Yes (Other)
  Sender: FDA-Public Use
  Company Number: PHHY2010CA84378

PATIENT
  Sex: Female

DRUGS (1)
  1. SANDOSTATIN LAR [Suspect]
     Indication: POST GASTRIC SURGERY SYNDROME
     Dosage: 20 MG, EVERY 3 WEEKS
     Route: 030
     Dates: start: 20041120

REACTIONS (4)
  - MUSCULOSKELETAL STIFFNESS [None]
  - HYPOGLYCAEMIA [None]
  - ASTHENIA [None]
  - URINARY TRACT INFECTION [None]
